FAERS Safety Report 11719956 (Version 1)
Quarter: 2015Q4

REPORT INFORMATION
  Report Type: Report from Study
  Country: CO (occurrence: CO)
  Receive Date: 20151110
  Receipt Date: 20151110
  Transmission Date: 20160304
  Serious: Yes (Hospitalization, Other)
  Sender: FDA-Public Use
  Company Number: CO-ROCHE-1656876

PATIENT
  Sex: Female
  Weight: 42 kg

DRUGS (1)
  1. AVASTIN [Suspect]
     Active Substance: BEVACIZUMAB
     Indication: COLON CANCER
     Route: 042
     Dates: start: 20150622

REACTIONS (3)
  - Disease progression [Unknown]
  - Drug ineffective [Unknown]
  - Weight decreased [Recovering/Resolving]
